FAERS Safety Report 8102296-1 (Version None)
Quarter: 2012Q1

REPORT INFORMATION
  Report Type: 
  Country: None (occurrence: None)
  Receive Date: 20120201
  Receipt Date: 20120124
  Transmission Date: 20120608
  Serious: No
  Sender: FDA-Public Use
  Company Number: US-PFIZER INC-2012020674

PATIENT
  Sex: Female

DRUGS (2)
  1. LO/OVRAL [Concomitant]
     Dosage: 1 DF, 2X/DAY
  2. ETHINYL ESTRADIOL AND NORGESTREL [Suspect]
     Dosage: UNK

REACTIONS (2)
  - DRUG INEFFECTIVE [None]
  - PRODUCT SUBSTITUTION ISSUE [None]
